FAERS Safety Report 13972700 (Version 2)
Quarter: 2017Q4

REPORT INFORMATION
  Report Type: Spontaneous
  Country: US (occurrence: US)
  Receive Date: 20170915
  Receipt Date: 20171002
  Transmission Date: 20180321
  Serious: No
  Sender: FDA-Public Use
  Company Number: US-GLAXOSMITHKLINE-US2017142461

PATIENT
  Age: 52 Year
  Sex: Female
  Weight: 105.21 kg

DRUGS (1)
  1. TANZEUM [Suspect]
     Active Substance: ALBIGLUTIDE
     Indication: DIABETES MELLITUS
     Dosage: 50 MG, UNK
     Dates: start: 20170719

REACTIONS (2)
  - Wrong technique in device usage process [Unknown]
  - Hypertension [Unknown]

NARRATIVE: CASE EVENT DATE: 20170912
